FAERS Safety Report 6830032-5 (Version None)
Quarter: 2010Q3

REPORT INFORMATION
  Report Type: 
  Country: None (occurrence: None)
  Receive Date: 20100711
  Receipt Date: 20100428
  Transmission Date: 20110219
  Serious: No
  Sender: FDA-Public Use
  Company Number: US-ALLERGAN-1005637US

PATIENT
  Sex: Female

DRUGS (1)
  1. LATISSE [Suspect]
     Indication: GROWTH OF EYELASHES
     Dosage: UNK
     Dates: start: 20090224, end: 20090701

REACTIONS (5)
  - ERYTHEMA OF EYELID [None]
  - EYE SWELLING [None]
  - EYELID EXFOLIATION [None]
  - EYELIDS PRURITUS [None]
  - OCULAR HYPERAEMIA [None]
